FAERS Safety Report 11285071 (Version 1)
Quarter: 2015Q3

REPORT INFORMATION
  Report Type: Spontaneous
  Country: US (occurrence: US)
  Receive Date: 20150720
  Receipt Date: 20150720
  Transmission Date: 20151125
  Serious: No
  Sender: FDA-Public Use
  Company Number: US-PFIZER INC-2015236247

PATIENT
  Age: 67 Year
  Sex: Male

DRUGS (1)
  1. GLIBENCLAMIDE [Suspect]
     Active Substance: GLYBURIDE
     Dosage: 10 MG, 2X/DAY (8 AM, 8 PM )
     Dates: end: 20150506

REACTIONS (2)
  - Drug hypersensitivity [Unknown]
  - Headache [Unknown]
